FAERS Safety Report 8075949-1 (Version None)
Quarter: 2012Q1

REPORT INFORMATION
  Report Type: 
  Country: None (occurrence: None)
  Receive Date: 20120117
  Receipt Date: 20120111
  Transmission Date: 20120608
  Serious: Yes (Disabling)
  Sender: FDA-Public Use
  Company Number: AUR-APL-2012-00462

PATIENT
  Age: 68 Year
  Sex: Male
  Weight: 81.65 kg

DRUGS (6)
  1. ASACOL [Concomitant]
  2. TIMOLOL MALEATE [Concomitant]
  3. LOCERYL (AMOROLFINE) [Concomitant]
  4. MIRTAZAPINE [Suspect]
     Indication: PRODUCT USED FOR UNKNOWN INDICATION
     Dates: start: 20111221
  5. SIMVASTATIN [Concomitant]
  6. CITALOPRAM HYDROBROMIDE [Concomitant]

REACTIONS (5)
  - URINARY TRACT DISORDER [None]
  - MUSCLE TWITCHING [None]
  - DIZZINESS [None]
  - MICTURITION URGENCY [None]
  - NOCTURIA [None]
